FAERS Safety Report 8389540-0 (Version None)
Quarter: 2012Q2

REPORT INFORMATION
  Report Type: 
  Country: None (occurrence: None)
  Receive Date: 20120528
  Receipt Date: 20120507
  Transmission Date: 20120825
  Serious: No
  Sender: FDA-Public Use
  Company Number: US-BAYER-2012-048105

PATIENT
  Age: 70 Year
  Sex: Female
  Weight: 61 kg

DRUGS (2)
  1. ACIPHEX [Concomitant]
  2. NAPROXEN SODIUM [Suspect]
     Indication: ARTHRALGIA
     Dosage: 2 U, PRN
     Route: 048
     Dates: start: 20120301

REACTIONS (1)
  - ARTHRALGIA [None]
